FAERS Safety Report 5217794-8 (Version None)
Quarter: 2007Q1

REPORT INFORMATION
  Report Type: 
  Country: None (occurrence: None)
  Receive Date: 20061130
  Receipt Date: 20060901
  Transmission Date: 20070707
  Serious: Yes (Other)
  Sender: FDA-Public Use
  Company Number: US200608005916

PATIENT
  Age: 29 Year
  Sex: Male
  Weight: 90.7 kg

DRUGS (1)
  1. ZYPREXA [Suspect]
     Dates: start: 20030101, end: 20050101

REACTIONS (7)
  - CEREBROVASCULAR DISORDER [None]
  - DIABETES MELLITUS [None]
  - DIABETIC KETOACIDOSIS [None]
  - HYPERTENSION [None]
  - METABOLIC DISORDER [None]
  - MYOCARDIAL ISCHAEMIA [None]
  - OBESITY [None]
